FAERS Safety Report 9291101 (Version 2)
Quarter: 2013Q3

REPORT INFORMATION
  Report Type: Spontaneous
  Country: US (occurrence: None)
  Receive Date: 20121017
  Receipt Date: 20130815
  Transmission Date: 20140515
  Serious: Yes (Hospitalization, Other)
  Sender: FDA-Public Use
  Company Number: ADR-2012-01744

PATIENT
  Age: 15 Year
  Sex: Female

DRUGS (2)
  1. BACLOFEN INTRATHECAL(BACLOFEN INJECTION) [Suspect]
     Indication: MUSCLE SPASTICITY
     Dosage: DAY
  2. BACLOFEN INTRATHECAL(BACLOFEN INJECTION) [Suspect]
     Indication: CEREBRAL PALSY
     Dosage: DAY

REACTIONS (6)
  - Drug ineffective [None]
  - Overdose [None]
  - Device occlusion [None]
  - Coma [None]
  - Drug withdrawal syndrome [None]
  - Skeletal injury [None]
